FAERS Safety Report 10771376 (Version 2)
Quarter: 2015Q1

REPORT INFORMATION
  Report Type: Spontaneous
  Country: AT (occurrence: AT)
  Receive Date: 20150206
  Receipt Date: 20150227
  Transmission Date: 20150721
  Serious: Yes (Hospitalization, Other)
  Sender: FDA-Public Use
  Company Number: AT-ELI_LILLY_AND_COMPANY-AT201501010378

PATIENT
  Age: 48 Year
  Sex: Female

DRUGS (35)
  1. ZYPREXA [Suspect]
     Active Substance: OLANZAPINE
     Dosage: 20 MG, UNKNOWN
     Route: 048
     Dates: start: 20140801, end: 20140801
  2. ZYPREXA [Suspect]
     Active Substance: OLANZAPINE
     Dosage: 15 MG, UNKNOWN
     Route: 048
     Dates: start: 20140802, end: 20140802
  3. TEMESTA                            /00273201/ [Concomitant]
     Active Substance: LORAZEPAM
     Dosage: 3-4 UNK, UNKNOWN
     Route: 065
     Dates: start: 20140901
  4. TEMESTA                            /00273201/ [Concomitant]
     Active Substance: LORAZEPAM
     Dosage: 6 MG, UNKNOWN
     Route: 042
     Dates: start: 20140808, end: 20140814
  5. ZYPREXA [Suspect]
     Active Substance: OLANZAPINE
     Dosage: 15 MG, UNKNOWN
     Route: 048
     Dates: start: 20140804, end: 20140804
  6. TEMESTA                            /00273201/ [Concomitant]
     Active Substance: LORAZEPAM
     Dosage: 3.75 DF, UNKNOWN
     Route: 065
     Dates: start: 20140815, end: 20140815
  7. ZYPREXA [Suspect]
     Active Substance: OLANZAPINE
     Dosage: 20 MG, UNKNOWN
     Route: 048
     Dates: start: 20140803, end: 20140803
  8. ZYPREXA [Suspect]
     Active Substance: OLANZAPINE
     Dosage: 5 MG, UNKNOWN
     Route: 048
     Dates: start: 20140810, end: 20140810
  9. TEMESTA                            /00273201/ [Concomitant]
     Active Substance: LORAZEPAM
     Dosage: 1.25 DF, UNKNOWN
     Route: 065
     Dates: start: 20140801, end: 20140803
  10. TEMESTA                            /00273201/ [Concomitant]
     Active Substance: LORAZEPAM
     Dosage: 4 MG, UNKNOWN
     Route: 042
     Dates: start: 20140805, end: 20140807
  11. LOVENOX [Concomitant]
     Active Substance: ENOXAPARIN SODIUM
     Dosage: 40 UNK, UNKNOWN
     Route: 065
     Dates: start: 20140804, end: 20140804
  12. NOZINAN                            /00038601/ [Concomitant]
     Active Substance: LEVOMEPROMAZINE
     Indication: DISORIENTATION
     Dosage: 50 MG, UNKNOWN
     Route: 065
     Dates: start: 20140809, end: 20140810
  13. RISPERDAL [Concomitant]
     Active Substance: RISPERIDONE
     Dosage: 6 MG, UNKNOWN
     Route: 065
     Dates: start: 20141016
  14. MULTIBIONTA                        /00111701/ [Concomitant]
     Dosage: 2 DF, UNKNOWN
     Route: 065
     Dates: start: 20140811
  15. LAMOTRIGIN [Concomitant]
     Active Substance: LAMOTRIGINE
     Dosage: 200 MG, UNKNOWN
     Route: 065
  16. TEMESTA                            /00273201/ [Concomitant]
     Active Substance: LORAZEPAM
     Dosage: 2.5 DF, UNKNOWN
     Route: 065
     Dates: start: 20140804, end: 20140804
  17. TEMESTA                            /00273201/ [Concomitant]
     Active Substance: LORAZEPAM
     Dosage: 3.75 DF, UNKNOWN
     Route: 065
     Dates: start: 20140819, end: 20140831
  18. LOVENOX [Concomitant]
     Active Substance: ENOXAPARIN SODIUM
     Dosage: 40 DF, UNKNOWN
     Route: 065
     Dates: start: 20140811, end: 20140818
  19. ELOMEL [Concomitant]
     Dosage: 1000 ML, UNKNOWN
     Route: 065
     Dates: start: 20140804, end: 20140809
  20. RISPERDAL [Concomitant]
     Active Substance: RISPERIDONE
     Dosage: 6 MG, UNKNOWN
     Route: 065
     Dates: start: 20140919, end: 20141003
  21. TEMESTA                            /00273201/ [Concomitant]
     Active Substance: LORAZEPAM
     Dosage: 2.5 DF, UNKNOWN
     Route: 065
     Dates: start: 20140731, end: 20140731
  22. TEMESTA                            /00273201/ [Concomitant]
     Active Substance: LORAZEPAM
     Dosage: 5 DF, UNKNOWN
     Route: 065
     Dates: start: 20140816, end: 20140818
  23. TEMESTA                            /00273201/ [Concomitant]
     Active Substance: LORAZEPAM
     Dosage: 2 MG, UNKNOWN
     Route: 042
     Dates: start: 20140815, end: 20140815
  24. RISPERDAL [Concomitant]
     Active Substance: RISPERIDONE
     Dosage: 8 MG, UNKNOWN
     Route: 065
     Dates: start: 20140820, end: 20140918
  25. RISPERDAL [Concomitant]
     Active Substance: RISPERIDONE
     Dosage: 4 MG, UNKNOWN
     Dates: start: 20141004, end: 20141015
  26. LAMOTRIGIN [Concomitant]
     Active Substance: LAMOTRIGINE
     Dosage: 150 MG, UNKNOWN
     Route: 065
     Dates: start: 20140801, end: 20140801
  27. ELOMEL [Concomitant]
     Dosage: 1500 ML, UNKNOWN
     Route: 065
     Dates: start: 20140810, end: 20140810
  28. ELOMEL [Concomitant]
     Dosage: 1000 ML, UNKNOWN
     Route: 065
     Dates: start: 20140811, end: 20140815
  29. ZYPREXA [Suspect]
     Active Substance: OLANZAPINE
     Indication: SCHIZOPHRENIA, PARANOID TYPE
     Dosage: 25 MG, UNKNOWN
     Route: 048
     Dates: start: 20140731, end: 20140731
  30. ZYPREXA [Suspect]
     Active Substance: OLANZAPINE
     Dosage: 25 MG, UNKNOWN
     Route: 048
     Dates: start: 20140805, end: 20140808
  31. ZYPREXA [Suspect]
     Active Substance: OLANZAPINE
     Dosage: 20 MG, UNKNOWN
     Route: 048
     Dates: start: 20140809, end: 20140809
  32. LAMOTRIGIN [Concomitant]
     Active Substance: LAMOTRIGINE
     Dosage: 200 MG, UNKNOWN
     Route: 065
     Dates: start: 20140802
  33. LOVENOX [Concomitant]
     Active Substance: ENOXAPARIN SODIUM
     Dosage: 20 UNK, UNKNOWN
     Route: 065
     Dates: start: 20140803, end: 20140803
  34. RISPERDAL [Concomitant]
     Active Substance: RISPERIDONE
     Dosage: 4 MG, UNKNOWN
     Route: 065
     Dates: start: 20140810, end: 20140812
  35. RISPERDAL [Concomitant]
     Active Substance: RISPERIDONE
     Dosage: 6 MG, UNKNOWN
     Route: 065
     Dates: start: 20140813, end: 20140819

REACTIONS (13)
  - Nervousness [Recovered/Resolved]
  - Pyrexia [Recovered/Resolved]
  - Delirium [Recovered/Resolved]
  - Prescribed overdose [Unknown]
  - Insomnia [Recovered/Resolved]
  - Gamma-glutamyltransferase increased [Recovered/Resolved]
  - Blood creatine phosphokinase increased [Recovered/Resolved]
  - Hallucination [Recovered/Resolved]
  - Blood glucose increased [Recovered/Resolved]
  - Fumbling [Recovered/Resolved]
  - Alanine aminotransferase increased [Recovered/Resolved]
  - Schizophrenia, paranoid type [Unknown]
  - Aspartate aminotransferase increased [Recovered/Resolved]

NARRATIVE: CASE EVENT DATE: 20140731
